FAERS Safety Report 5090687-5 (Version None)
Quarter: 2006Q3

REPORT INFORMATION
  Report Type: 
  Country: None (occurrence: None)
  Receive Date: 20060822
  Receipt Date: 20060809
  Transmission Date: 20061208
  Serious: Yes (Hospitalization)
  Sender: FDA-Public Use
  Company Number: HQWYE298110AUG06

PATIENT
  Age: 58 Year
  Sex: Male

DRUGS (11)
  1. CORDARONE [Suspect]
     Indication: ATRIAL FIBRILLATION
     Dosage: TOTAL DOSE: CA 1.6 G BOLUS AND MAINTENANCE DOSE INTRAVENOUS
     Route: 042
     Dates: start: 20060401, end: 20060401
  2. CORDARONE [Suspect]
     Indication: ATRIAL FIBRILLATION
     Dosage: TOTAL DOSE: CA 1.6 G BOLUS AND MAINTENANCE DOSE INTRAVENOUS
     Route: 042
     Dates: start: 20060427, end: 20060428
  3. KALIUM RETARD                        (POTASSIUM CLORIDE) [Concomitant]
  4. PROPAVAN (PROPIOMAZINE MALEATE) [Concomitant]
  5. FUROSEMIDE [Concomitant]
  6. ZOPICLONE (ZOPICLONE) [Concomitant]
  7. ETALPHA (ALFACALCIDOL) [Concomitant]
  8. SELOKEN ZOC (METOPROLOL SUCCINATE) [Concomitant]
  9. OMEPRAZOLE [Concomitant]
  10. OXASCAND (OXAZEPAM) [Concomitant]
  11. ENALAPRIL MALEATE [Concomitant]

REACTIONS (7)
  - ASPARTATE AMINOTRANSFERASE INCREASED [None]
  - BLOOD BILIRUBIN INCREASED [None]
  - BLOOD LACTATE DEHYDROGENASE INCREASED [None]
  - HEPATOTOXICITY [None]
  - JAUNDICE [None]
  - NAUSEA [None]
  - TRANSAMINASES INCREASED [None]
